FAERS Safety Report 13190484 (Version 1)
Quarter: 2017Q1

REPORT INFORMATION
  Report Type: Spontaneous
  Country: US (occurrence: US)
  Receive Date: 20170206
  Receipt Date: 20170206
  Transmission Date: 20170428
  Serious: No
  Sender: FDA-Public Use
  Company Number: US-009507513-1702USA000942

PATIENT
  Age: 23 Year
  Sex: Female
  Weight: 45.35 kg

DRUGS (1)
  1. NEXPLANON [Suspect]
     Active Substance: ETONOGESTREL
     Indication: CONTRACEPTION
     Dosage: 1 IMPLANT IN LEFT ARM / 3 YEAR IMPLANT
     Route: 059
     Dates: start: 20150930

REACTIONS (12)
  - Eating disorder [Unknown]
  - Menometrorrhagia [Unknown]
  - Depression [Unknown]
  - Weight abnormal [Unknown]
  - Anger [Unknown]
  - Mood swings [Unknown]
  - Muscle spasms [Unknown]
  - Nausea [Unknown]
  - Vomiting [Unknown]
  - Decreased appetite [Unknown]
  - Weight decreased [Unknown]
  - Nervousness [Unknown]

NARRATIVE: CASE EVENT DATE: 20150930
